FAERS Safety Report 11508725 (Version 2)
Quarter: 2015Q4

REPORT INFORMATION
  Report Type: Spontaneous
  Country: JP (occurrence: JP)
  Receive Date: 20150915
  Receipt Date: 20151104
  Transmission Date: 20160304
  Serious: Yes (Other)
  Sender: FDA-Public Use
  Company Number: JP-PFIZER INC-2015298623

PATIENT
  Age: 84 Year
  Sex: Male

DRUGS (18)
  1. GLACTIV [Concomitant]
     Active Substance: SITAGLIPTIN
  2. MYSLEE [Concomitant]
     Active Substance: ZOLPIDEM TARTRATE
  3. EVIPROSTAT N [Concomitant]
     Active Substance: HERBALS
  4. MADOPAR [Concomitant]
     Active Substance: BENSERAZIDE HYDROCHLORIDE\LEVODOPA
  5. BAYASPIRIN [Concomitant]
     Active Substance: ASPIRIN
     Dosage: UNK
  6. LANSOPRAZOLE. [Concomitant]
     Active Substance: LANSOPRAZOLE
  7. MAGNESIUM OXIDE. [Concomitant]
     Active Substance: MAGNESIUM OXIDE
  8. FLORINEF ACETATE [Concomitant]
     Active Substance: FLUDROCORTISONE ACETATE
  9. TRERIEF [Concomitant]
     Active Substance: ZONISAMIDE
  10. NOVORAPID [Concomitant]
     Active Substance: INSULIN ASPART
  11. LEVEMIR [Concomitant]
     Active Substance: INSULIN DETEMIR
  12. LYRICA [Suspect]
     Active Substance: PREGABALIN
     Indication: HYPOAESTHESIA
     Dosage: 25 MG, 1X/DAY
     Route: 048
     Dates: start: 20150430, end: 20150506
  13. MOSAPRIDE [Concomitant]
     Active Substance: MOSAPRIDE
  14. NOURIAST [Concomitant]
     Active Substance: ISTRADEFYLLINE
  15. METHYCOBAL [Concomitant]
     Active Substance: METHYLCOBALAMIN
  16. LYRICA [Suspect]
     Active Substance: PREGABALIN
     Dosage: 25 MG, 2X/DAY
     Route: 048
     Dates: start: 20150507
  17. NEUPRO [Concomitant]
     Active Substance: ROTIGOTINE
  18. OPALMON [Concomitant]
     Active Substance: LIMAPROST

REACTIONS (2)
  - Gastric cancer [Unknown]
  - Condition aggravated [Unknown]

NARRATIVE: CASE EVENT DATE: 20150817
